FAERS Safety Report 9282852 (Version 3)
Quarter: 2013Q2

REPORT INFORMATION
  Report Type: Spontaneous
  Country: JP (occurrence: JP)
  Receive Date: 20130510
  Receipt Date: 20130524
  Transmission Date: 20140414
  Serious: No
  Sender: FDA-Public Use
  Company Number: JP-JNJFOC-20130501285

PATIENT
  Age: 8 Year
  Sex: Male
  Weight: 27 kg

DRUGS (2)
  1. CONCERTA [Suspect]
     Indication: ATTENTION DEFICIT/HYPERACTIVITY DISORDER
     Route: 048
     Dates: start: 20130213, end: 20130401
  2. STRATTERA [Concomitant]
     Indication: PRODUCT USED FOR UNKNOWN INDICATION
     Route: 048
     Dates: start: 20121107, end: 20130318

REACTIONS (2)
  - Pyrexia [Unknown]
  - Hepatic function abnormal [Recovered/Resolved]
